FAERS Safety Report 4414426-3 (Version None)
Quarter: 2004Q3

REPORT INFORMATION
  Report Type: 
  Country: None (occurrence: None)
  Receive Date: 20040701
  Receipt Date: 20040510
  Transmission Date: 20050211
  Serious: Yes (Hospitalization, Other)
  Sender: FDA-Public Use
  Company Number: 200417829BWH

PATIENT
  Sex: Female

DRUGS (2)
  1. CIPRO XR [Suspect]
     Indication: URINARY TRACT INFECTION
     Dosage: 1000 MG, TOTAL DAILY, ORAL
     Route: 048
     Dates: start: 20040401
  2. MEDICATIONS FOR HYPERTENSION [Concomitant]

REACTIONS (6)
  - BLOOD CREATININE INCREASED [None]
  - CLOSTRIDIUM DIFFICILE TOXIN TEST [None]
  - DEHYDRATION [None]
  - NAUSEA [None]
  - RENAL FAILURE [None]
  - VOMITING [None]
